FAERS Safety Report 11244574 (Version 2)
Quarter: 2015Q4

REPORT INFORMATION
  Report Type: Spontaneous
  Country: US (occurrence: US)
  Receive Date: 20150707
  Receipt Date: 20151009
  Transmission Date: 20160304
  Serious: Yes (Hospitalization)
  Sender: FDA-Public Use
  Company Number: US-PFIZER INC-2015220872

PATIENT
  Age: 71 Year
  Sex: Female
  Weight: 54 kg

DRUGS (3)
  1. PREMARIN [Suspect]
     Active Substance: ESTROGENS, CONJUGATED
     Dosage: 1 G, THREE TIMES A WEEK
  2. FOSAMAX [Concomitant]
     Active Substance: ALENDRONATE SODIUM
     Dosage: 70 MG, WEEKLY
  3. PREMARIN [Suspect]
     Active Substance: ESTROGENS, CONJUGATED
     Indication: CYSTITIS
     Dosage: 1 G, DAILY
     Dates: start: 20150215

REACTIONS (5)
  - Breast discomfort [Recovered/Resolved]
  - Vulvovaginal burning sensation [Unknown]
  - Vasodilatation [Unknown]
  - Nausea [Unknown]
  - Product use issue [Unknown]

NARRATIVE: CASE EVENT DATE: 20150215
